FAERS Safety Report 7517214-4 (Version None)
Quarter: 2011Q2

REPORT INFORMATION
  Report Type: 
  Country: None (occurrence: None)
  Receive Date: 20110601
  Receipt Date: 20110526
  Transmission Date: 20111010
  Serious: Yes (Hospitalization, Other)
  Sender: FDA-Public Use
  Company Number: US-ABBOTT-11P-163-0727745-00

PATIENT
  Sex: Male

DRUGS (7)
  1. ENTOCORT EC [Concomitant]
     Indication: CROHN'S DISEASE
     Route: 048
  2. SYNTHROID [Concomitant]
     Indication: THYROIDECTOMY
     Route: 048
  3. CIPRO [Suspect]
     Indication: INFLAMMATORY BOWEL DISEASE
     Route: 042
     Dates: start: 20110301, end: 20110301
  4. FLAGYL [Suspect]
     Indication: INFLAMMATORY BOWEL DISEASE
     Route: 042
     Dates: start: 20110301, end: 20110301
  5. CIPRO [Suspect]
     Indication: GASTROINTESTINAL INFECTION
  6. HUMIRA [Suspect]
     Indication: CROHN'S DISEASE
     Route: 058
     Dates: start: 20101101
  7. FLAGYL [Suspect]
     Indication: GASTROINTESTINAL INFECTION

REACTIONS (7)
  - ILEAL STENOSIS [None]
  - CLOSTRIDIUM DIFFICILE COLITIS [None]
  - CROHN'S DISEASE [None]
  - ABDOMINAL PAIN [None]
  - COLITIS [None]
  - INTESTINAL OBSTRUCTION [None]
  - ENTERITIS INFECTIOUS [None]
